FAERS Safety Report 21634451 (Version 1)
Quarter: 2022Q4

REPORT INFORMATION
  Report Type: Spontaneous
  Country: US (occurrence: None)
  Receive Date: 20221123
  Receipt Date: 20221123
  Transmission Date: 20230113
  Serious: Yes (Hospitalization)
  Sender: FDA-Public Use
  Company Number: None

PATIENT
  Age: 68 Year
  Sex: Female
  Weight: 76.5 kg

DRUGS (3)
  1. REPATHA [Suspect]
     Active Substance: EVOLOCUMAB
     Indication: Blood cholesterol
     Dosage: OTHER QUANTITY : 1 INJECTION(S);?OTHER FREQUENCY : EVERY TWO WEEKS;?
     Route: 058
  2. NP THYROID [Concomitant]
     Active Substance: LEVOTHYROXINE\LIOTHYRONINE
  3. VITAMIN E [Concomitant]
     Active Substance: .ALPHA.-TOCOPHEROL

REACTIONS (13)
  - Fatigue [None]
  - Gastroenteritis viral [None]
  - Dizziness [None]
  - Palpitations [None]
  - Gait disturbance [None]
  - Fall [None]
  - Mental impairment [None]
  - Tinnitus [None]
  - Sensation of blood flow [None]
  - Eye disorder [None]
  - Dyspnoea [None]
  - Movement disorder [None]
  - Haemoglobin decreased [None]

NARRATIVE: CASE EVENT DATE: 20210513
